APPROVED DRUG PRODUCT: GLUCAGON
Active Ingredient: GLUCAGON HYDROCHLORIDE
Strength: EQ 1MG BASE/VIAL
Dosage Form/Route: POWDER;INTRAMUSCULAR, INTRAVENOUS, SUBCUTANEOUS
Application: N201849 | Product #002
Applicant: FRESENIUS KABI USA LLC
Approved: Sep 19, 2019 | RLD: Yes | RS: Yes | Type: RX